FAERS Safety Report 9942687 (Version 1)
Quarter: 2014Q1

REPORT INFORMATION
  Report Type: Report from Study
  Country: US (occurrence: US)
  Receive Date: 20140303
  Receipt Date: 20140303
  Transmission Date: 20141002
  Serious: No
  Sender: FDA-Public Use
  Company Number: US-ABBVIE-13P-163-1045862-00

PATIENT
  Age: 45 Year
  Sex: Male

DRUGS (7)
  1. HUMIRA [Suspect]
     Indication: PSORIATIC ARTHROPATHY
  2. HUMIRA [Suspect]
     Indication: PSORIATIC ARTHROPATHY
     Route: 058
     Dates: start: 20130125
  3. LORATADINE [Concomitant]
     Indication: SINUS DISORDER
  4. SYNTHROID [Concomitant]
     Indication: THYROID DISORDER
  5. DICYCLOMINE [Concomitant]
     Indication: GASTROINTESTINAL DISORDER
  6. PROZAC [Concomitant]
     Indication: DEPRESSED MOOD
  7. PROZAC [Concomitant]
     Indication: DEPRESSION

REACTIONS (5)
  - Fall [Not Recovered/Not Resolved]
  - Ankle fracture [Not Recovered/Not Resolved]
  - Jaw fracture [Not Recovered/Not Resolved]
  - Psoriasis [Not Recovered/Not Resolved]
  - Arthritis [Not Recovered/Not Resolved]
